FAERS Safety Report 23632060 (Version 1)
Quarter: 2024Q1

REPORT INFORMATION
  Report Type: Report from Study
  Country: CN (occurrence: CN)
  Receive Date: 20240314
  Receipt Date: 20240314
  Transmission Date: 20240409
  Serious: Yes (Other)
  Sender: FDA-Public Use
  Company Number: CN-TAKEDA-2024TUS023266

PATIENT
  Age: 25 Year
  Sex: Male
  Weight: 66 kg

DRUGS (8)
  1. VEDOLIZUMAB [Suspect]
     Active Substance: VEDOLIZUMAB
     Indication: Colitis ulcerative
     Dosage: 300 MILLIGRAM
     Route: 042
     Dates: start: 20220930
  2. CALCIUM CARBONATE\CHOLECALCIFEROL [Concomitant]
     Active Substance: CALCIUM CARBONATE\CHOLECALCIFEROL
     Indication: Inflammatory bowel disease
     Dosage: 600 MILLIGRAM, QD
     Route: 048
     Dates: start: 20220930
  3. MESALAMINE [Concomitant]
     Active Substance: MESALAMINE
     Indication: Inflammatory bowel disease
     Dosage: 2 GRAM, BID
     Route: 048
     Dates: start: 20220930
  4. MESALAMINE [Concomitant]
     Active Substance: MESALAMINE
     Dosage: 1.5 GRAM, BID
     Route: 048
     Dates: start: 20221009
  5. RABEPRAZOLE SODIUM [Concomitant]
     Active Substance: RABEPRAZOLE SODIUM
     Indication: Inflammatory bowel disease
     Dosage: 10 MILLIGRAM, QD
     Route: 048
     Dates: start: 20220930
  6. VITAMIN C [Concomitant]
     Active Substance: ASCORBIC ACID
     Indication: Inflammatory bowel disease
     Dosage: 100 MILLIGRAM, QD
     Route: 048
     Dates: start: 20220930
  7. FOLIC ACID [Concomitant]
     Active Substance: FOLIC ACID
     Indication: Inflammatory bowel disease
     Dosage: 5 MILLIGRAM, TID
     Route: 048
     Dates: start: 20220930
  8. METHYLCOBALAMIN [Concomitant]
     Active Substance: METHYLCOBALAMIN
     Indication: Inflammatory bowel disease
     Dosage: 0.5 MILLIGRAM, TID
     Route: 048
     Dates: start: 20220930

REACTIONS (1)
  - Pneumonia bacterial [Recovered/Resolved]

NARRATIVE: CASE EVENT DATE: 20240212
